FAERS Safety Report 5023321-0 (Version None)
Quarter: 2006Q2

REPORT INFORMATION
  Report Type: 
  Country: None (occurrence: None)
  Receive Date: 20060612
  Receipt Date: 20050415
  Transmission Date: 20061013
  Serious: Yes (Hospitalization, Other)
  Sender: FDA-Public Use
  Company Number: 200513250US

PATIENT
  Sex: Female
  Weight: 64.09 kg

DRUGS (9)
  1. KETEK [Suspect]
     Indication: UPPER RESPIRATORY TRACT INFECTION
     Route: 048
     Dates: start: 20050329, end: 20050403
  2. MULTIVITAMINS, PLAIN [Concomitant]
     Dosage: DOSE: UNKNOWN
  3. ASPIRIN [Concomitant]
     Dosage: DOSE: UNKNOWN
  4. DIABETIC TUSSIN [Concomitant]
     Dosage: DOSE: UNKNOWN
  5. ORTHO-NOVUM 7/7/7-28 [Concomitant]
     Dosage: DOSE: 1 TABLET
  6. VIACTIV [Concomitant]
     Dosage: DOSE: UNKNOWN
  7. CALCIUM GLUCONATE [Concomitant]
     Dosage: DOSE: UNKNOWN
  8. VITAMIN D [Concomitant]
     Dosage: DOSE: UNKNOWN
  9. IMODIUM [Concomitant]
     Dosage: DOSE: UNKNOWN

REACTIONS (60)
  - ABDOMINAL DISTENSION [None]
  - ABDOMINAL PAIN [None]
  - ABDOMINAL PAIN UPPER [None]
  - ALANINE AMINOTRANSFERASE INCREASED [None]
  - ALPHA 1 FOETOPROTEIN INCREASED [None]
  - ANAEMIA [None]
  - ANOREXIA [None]
  - ASCITES [None]
  - ASPARTATE AMINOTRANSFERASE INCREASED [None]
  - BILIRUBIN CONJUGATED INCREASED [None]
  - BLOOD ALKALINE PHOSPHATASE INCREASED [None]
  - BLOOD BILIRUBIN INCREASED [None]
  - BLOOD CHLORIDE DECREASED [None]
  - BLOOD CREATININE INCREASED [None]
  - BLOOD GLUCOSE INCREASED [None]
  - BLOOD IMMUNOGLOBULIN G INCREASED [None]
  - BLOOD UREA DECREASED [None]
  - CERULOPLASMIN DECREASED [None]
  - CHEST PAIN [None]
  - CHROMATURIA [None]
  - COMPLICATIONS OF TRANSPLANT SURGERY [None]
  - DIABETES MELLITUS INSULIN-DEPENDENT [None]
  - DIARRHOEA [None]
  - DRUG HYPERSENSITIVITY [None]
  - DYSPEPSIA [None]
  - DYSPNOEA [None]
  - EOSINOPHIL COUNT INCREASED [None]
  - FATIGUE [None]
  - HAEMATOCRIT DECREASED [None]
  - HAEMOGLOBIN DECREASED [None]
  - HEADACHE [None]
  - HEPATIC CIRRHOSIS [None]
  - HEPATIC FAILURE [None]
  - HYDROTHORAX [None]
  - HYPERTENSION [None]
  - HYPOALBUMINAEMIA [None]
  - HYPOCALCAEMIA [None]
  - HYPOGLYCAEMIA [None]
  - HYPOKALAEMIA [None]
  - HYPONATRAEMIA [None]
  - JAUNDICE [None]
  - LIVER TRANSPLANT [None]
  - MALAISE [None]
  - NAUSEA [None]
  - OCULAR ICTERUS [None]
  - OEDEMA [None]
  - OLIGURIA [None]
  - PARAESTHESIA [None]
  - PLATELET COUNT DECREASED [None]
  - PLEURAL EFFUSION [None]
  - PROTHROMBIN TIME PROLONGED [None]
  - RENAL IMPAIRMENT [None]
  - SENSITIVITY OF TEETH [None]
  - SERUM FERRITIN INCREASED [None]
  - SMOOTH MUSCLE ANTIBODY POSITIVE [None]
  - SPLENOMEGALY [None]
  - TRANSPLANT REJECTION [None]
  - VARICOSE VEIN [None]
  - WEIGHT INCREASED [None]
  - WHITE BLOOD CELL COUNT INCREASED [None]
